FAERS Safety Report 10489549 (Version 1)
Quarter: 2014Q3

REPORT INFORMATION
  Report Type: Spontaneous
  Country: DK (occurrence: None)
  Receive Date: 20140930
  Receipt Date: 20140930
  Transmission Date: 20150326
  Serious: No
  Sender: FDA-Public Use
  Company Number: DK-LHC-2014084

PATIENT
  Age: 78 Year
  Sex: Female

DRUGS (1)
  1. CONOXIA [Suspect]
     Active Substance: OXYGEN
     Dosage: INHALATION

REACTIONS (2)
  - Device leakage [None]
  - Frostbite [None]

NARRATIVE: CASE EVENT DATE: 20140920
